FAERS Safety Report 7564623-3 (Version None)
Quarter: 2011Q2

REPORT INFORMATION
  Report Type: 
  Country: None (occurrence: None)
  Receive Date: 20110622
  Receipt Date: 20100802
  Transmission Date: 20111010
  Serious: Yes (Other)
  Sender: FDA-Public Use
  Company Number: US-MYLANLABS-2010S1012583

PATIENT
  Age: 28 Year
  Sex: Female
  Weight: 116.58 kg

DRUGS (8)
  1. CLOZAPINE [Suspect]
     Indication: SCHIZOPHRENIA
  2. MILK OF MAGNESIA TAB [Concomitant]
     Dates: start: 20100504
  3. OMEPRAZOLE [Concomitant]
     Dates: start: 20100526
  4. FLUTICASONE PROPIONATE [Concomitant]
     Dates: start: 20100323
  5. BENZOYL PEROXIDE [Concomitant]
     Route: 061
     Dates: start: 20100507
  6. LEVOTHYROXINE SODIUM [Concomitant]
     Dates: start: 20100521
  7. HEPATITIS B VACCINE [Concomitant]
     Dates: start: 20100703, end: 20100703
  8. IBUPROFEN [Concomitant]
     Dates: start: 20100619

REACTIONS (1)
  - GRANULOCYTOPENIA [None]
